FAERS Safety Report 7798908-2 (Version None)
Quarter: 2011Q4

REPORT INFORMATION
  Report Type: 
  Country: None (occurrence: None)
  Receive Date: 20111006
  Receipt Date: 20111003
  Transmission Date: 20120403
  Serious: Yes (Death, Other)
  Sender: FDA-Public Use
  Company Number: US-JNJFOC-20111001400

PATIENT
  Age: 55 Year

DRUGS (2)
  1. REOPRO [Suspect]
     Indication: ACUTE MYOCARDIAL INFARCTION
     Dosage: INTRAVENOUS BOLUS
     Route: 042
     Dates: start: 20110926, end: 20110926
  2. REOPRO [Suspect]
     Dosage: INFUSION RATE OF 9 ML PER HOUR
     Route: 042
     Dates: start: 20110926

REACTIONS (4)
  - RENAL IMPAIRMENT [None]
  - RESPIRATORY FAILURE [None]
  - PULMONARY OEDEMA [None]
  - DEATH [None]
